FAERS Safety Report 12393234 (Version 2)
Quarter: 2016Q3

REPORT INFORMATION
  Report Type: Spontaneous
  Country: US (occurrence: US)
  Receive Date: 20160523
  Receipt Date: 20160810
  Transmission Date: 20161109
  Serious: No
  Sender: FDA-Public Use
  Company Number: US-PFIZER INC-2016199496

PATIENT
  Age: 68 Year
  Sex: Female

DRUGS (3)
  1. VIAGRA [Suspect]
     Active Substance: SILDENAFIL CITRATE
     Indication: RAYNAUD^S PHENOMENON
     Dosage: 50 MG, UNK
  2. VIAGRA [Suspect]
     Active Substance: SILDENAFIL CITRATE
     Indication: BLOOD PRESSURE DECREASED
     Dosage: 25 MG, 3X/DAY (FOR 10 MONTHS)
     Dates: start: 201503
  3. VIAGRA [Suspect]
     Active Substance: SILDENAFIL CITRATE
     Indication: PERIPHERAL VASCULAR DISORDER
     Dosage: 25 MG, 2X/DAY

REACTIONS (1)
  - Drug ineffective for unapproved indication [Unknown]
